FAERS Safety Report 12270024 (Version 1)
Quarter: 2016Q2

REPORT INFORMATION
  Report Type: Spontaneous
  Country: FR (occurrence: FR)
  Receive Date: 20160415
  Receipt Date: 20160415
  Transmission Date: 20160815
  Serious: Yes (Hospitalization)
  Sender: FDA-Public Use
  Company Number: FR-HOSPIRA-3242929

PATIENT
  Age: 63 Year
  Sex: Female

DRUGS (2)
  1. CARBOPLATIN HOSPIRA [Suspect]
     Active Substance: CARBOPLATIN
     Indication: OVARIAN EPITHELIAL CANCER
     Route: 042
     Dates: start: 20151021
  2. PACLITAXEL HOSPIRA [Suspect]
     Active Substance: PACLITAXEL
     Indication: OVARIAN EPITHELIAL CANCER
     Dates: start: 20151021

REACTIONS (11)
  - Pulmonary veno-occlusive disease [Unknown]
  - Atelectasis [Unknown]
  - Ascites [Unknown]
  - Effusion [Unknown]
  - Oliguria [Unknown]
  - Pneumonia [Unknown]
  - Pleural effusion [Unknown]
  - Septic shock [Recovered/Resolved]
  - Pneumonia aspiration [Unknown]
  - Neutropenia [Unknown]
  - Escherichia infection [Unknown]

NARRATIVE: CASE EVENT DATE: 20151029
